FAERS Safety Report 23394139 (Version 2)
Quarter: 2024Q1

REPORT INFORMATION
  Report Type: Spontaneous
  Country: CH (occurrence: CH)
  Receive Date: 20240111
  Receipt Date: 20240118
  Transmission Date: 20240409
  Serious: Yes (Hospitalization, Other)
  Sender: FDA-Public Use
  Company Number: None

PATIENT
  Age: 72 Year
  Sex: Female
  Weight: 165.0 kg

DRUGS (20)
  1. ABECMA [Suspect]
     Active Substance: IDECABTAGENE VICLEUCEL
     Indication: Plasma cell myeloma
     Dosage: CAR-T CELLS
     Route: 042
     Dates: start: 20221010, end: 20221010
  2. FLUDARABINE [Suspect]
     Active Substance: FLUDARABINE PHOSPHATE
     Indication: Lymphodepletion
     Dates: start: 20221005, end: 20221007
  3. CYCLOPHOSPHAMIDE [Suspect]
     Active Substance: CYCLOPHOSPHAMIDE
     Indication: Lymphodepletion
     Dates: start: 20221005, end: 20221007
  4. BENEXOL B12 [COCARBOXYLASE;HYDROXOCOBALAMIN;PYRIDOXINE HYDROCHLORIDE] [Concomitant]
     Indication: Lymphodepletion
     Dosage: (VITAMIN B1, B6, B12) PO 1 TABLET ONCE DAILY PAUSED
     Route: 048
  5. DAFALGAN [Concomitant]
     Active Substance: ACETAMINOPHEN
     Indication: Pain
     Dosage: DAFALGAN TABLETS 500 MG QID
     Route: 048
  6. PALLADONE [Concomitant]
     Active Substance: HYDROMORPHONE HYDROCHLORIDE
     Indication: Product used for unknown indication
     Dosage: PALLADONE EXTENDED RELEASE 4 MG 30 CAPSULES (HYDROMORPHONE) PO 1 CAPSULE EVERY 12 HOURS PLEASE TAPER
     Route: 048
  7. PALLADONE [Concomitant]
     Active Substance: HYDROMORPHONE HYDROCHLORIDE
     Dosage: 1.3 MG (HYDROMORPHONE) PO 1 CAPSULE EVERY 6 HOURS; MAXIMUM/24 HOURS: 4 CAPSULES IN RESERVE
     Route: 048
  8. VALTREX [Concomitant]
     Active Substance: VALACYCLOVIR HYDROCHLORIDE
     Indication: Product used for unknown indication
     Dosage: VALTREX FILM-COATED TABLETS 500 MG (VALACICLOVIR) PO 1 TABLET EVERY 12 HOURS
     Route: 048
  9. VORICONAZOLE [Concomitant]
     Active Substance: VORICONAZOLE
     Indication: Product used for unknown indication
     Dosage: VORICONAZOLEMEPHA LACTAB 2000 MG (VORICONAZOLE) PO 1 TABLET EVERY 12 HOURS
     Route: 048
  10. VORICONAZOLE [Concomitant]
     Active Substance: VORICONAZOLE
     Dosage: VORICONAZOLEMEPHA LACTAB 50 MG (VORICONAZOLE) PO 1 TABLET EVERY 12 HOURS
     Route: 048
  11. TORSEMIDE [Concomitant]
     Active Substance: TORSEMIDE
     Indication: Product used for unknown indication
     Dosage: TOREM 5 MG TABLETS (TORASEMIDE) PO 1 TABLET ONCE DAILY REEVALUATION BY ONCOLOGISTS
     Route: 048
  12. VITARUBIN [CYANOCOBALAMIN] [Concomitant]
     Indication: Product used for unknown indication
     Dosage: VITARUBIN INJ SOLUTION 1,000 MCG/1 ML(CYANOCOBALAMINE (VITAMIN B12)) IM MCG 1000 0 0 0 FR PAUSED (NE
     Route: 030
  13. DORZOLAMIDE HYDROCHLORIDE\TIMOLOL MALEATE [Concomitant]
     Active Substance: DORZOLAMIDE HYDROCHLORIDE\TIMOLOL MALEATE
     Indication: Product used for unknown indication
     Dosage: COSOPT-S GTT OPHT SDU CONJUNCTIVAL DROPS BILATERALLY EVERY 12 HOURS
  14. TAFLUPROST [Concomitant]
     Active Substance: TAFLUPROST
     Indication: Product used for unknown indication
     Dosage: SAFLUTAN GTT OPHT CONJUNCTIVAL DROPS BILATERALLY ONCE DAILY IN THE EVENING
  15. DOMPERIDONE [Concomitant]
     Active Substance: DOMPERIDONE
     Indication: Nausea
     Dosage: DOMPERIDONE MEPHA ORODISPERSIBLE TABLETS 10 MG 30 TABLETS (DOMPERIDONE) PO 1 TABLET; MAXIMUM/24 HR:
     Route: 048
  16. LAXIPEG [Concomitant]
     Indication: Constipation
     Dosage: LAXIPEGPLV 10 G AROMA-FREE SACHET (MACROGOL 4000) PO 1 SACHET; MAXIMUM/24 H:2 SACHETS IN RESERVE FOR
  17. ONDANSETRON [Concomitant]
     Active Substance: ONDANSETRON
     Indication: Constipation
     Dosage: ONDANSETRON LABATEC INF CONC 4 MG/2 ML (ONDANSETRON) IV 4 MG EVERY 8 HOURS; MAXIMUM/24 HOURS: 12 MG
     Route: 042
  18. BACTRIM [Concomitant]
     Active Substance: SULFAMETHOXAZOLE\TRIMETHOPRIM
     Indication: Product used for unknown indication
     Dosage: BACTRIM FORTE TABLETS 800/160 MG (SULFAMETHOXAZOLE, TRIMETHOPRIM) 1 TABLET ONCE DAILY
  19. ELIQUIS [Concomitant]
     Active Substance: APIXABAN
     Indication: Product used for unknown indication
     Dosage: ELIQUIS FILM-COATED TABLETS 5 MG (APIXABAN) 1 TABLET EVERY 12 HOURS
  20. ESOMEPRAZOLE MAGNESIUM [Concomitant]
     Active Substance: ESOMEPRAZOLE\ESOMEPRAZOLE MAGNESIUM\ESOMEPRAZOLE MAGNESIUM DIHYDRATE
     Indication: Product used for unknown indication
     Dosage: NEXIUM MUPSTABL 40 MG 100 PCS (ESOMEPRAZOLE) 1 TABLET ONCE DAILY

REACTIONS (10)
  - Pancytopenia [Not Recovered/Not Resolved]
  - Neutropenia [Unknown]
  - Cytokine release syndrome [Unknown]
  - Femur fracture [Unknown]
  - Respiratory tract infection viral [Unknown]
  - Bronchopulmonary aspergillosis [Unknown]
  - Type 2 diabetes mellitus [Unknown]
  - Malnutrition [Unknown]
  - Escherichia bacteraemia [Unknown]
  - Cellulitis [Unknown]

NARRATIVE: CASE EVENT DATE: 20221010
